FAERS Safety Report 4734745-0 (Version None)
Quarter: 2005Q3

REPORT INFORMATION
  Report Type: 
  Country: None (occurrence: None)
  Receive Date: 20050804
  Receipt Date: 20040825
  Transmission Date: 20060218
  Serious: Yes (Hospitalization)
  Sender: FDA-Public Use
  Company Number: JP-GLAXOSMITHKLINE-B0343894A

PATIENT
  Age: 14 Year
  Sex: Male
  Weight: 54 kg

DRUGS (5)
  1. MODACIN [Suspect]
     Indication: PNEUMONIA
     Dosage: 1G TWICE PER DAY
     Route: 042
     Dates: start: 20040724, end: 20040729
  2. MINOMYCIN [Concomitant]
     Indication: PNEUMONIA
     Dosage: 100MG PER DAY
     Route: 042
     Dates: start: 20040727, end: 20040729
  3. PHENOBAL [Concomitant]
     Indication: EPILEPSY
     Dosage: 90MG PER DAY
     Route: 048
     Dates: start: 20040519, end: 20040727
  4. CALONAL [Concomitant]
     Route: 054
     Dates: start: 20040724, end: 20040731
  5. WAKOBITAL [Concomitant]
     Route: 054
     Dates: start: 20040728, end: 20040729

REACTIONS (9)
  - CONJUNCTIVAL HYPERAEMIA [None]
  - CONVULSION [None]
  - DYSPHAGIA [None]
  - ERYTHEMA [None]
  - EXCORIATION [None]
  - HAEMORRHAGE [None]
  - PYREXIA [None]
  - STEVENS-JOHNSON SYNDROME [None]
  - STOMATITIS [None]
